FAERS Safety Report 12728410 (Version 1)
Quarter: 2016Q3

REPORT INFORMATION
  Report Type: Spontaneous
  Country: US (occurrence: US)
  Receive Date: 20160907
  Receipt Date: 20160907
  Transmission Date: 20161109
  Serious: Yes (Other)
  Sender: FDA-Public Use
  Company Number: None

PATIENT
  Age: 42 Year
  Sex: Female
  Weight: 76.5 kg

DRUGS (1)
  1. MIRENA [Suspect]
     Active Substance: LEVONORGESTREL
     Indication: CONTRACEPTION
     Route: 015
     Dates: start: 20160301, end: 20160609

REACTIONS (13)
  - Abdominal pain upper [None]
  - Mood swings [None]
  - Migraine [None]
  - Arthralgia [None]
  - Myalgia [None]
  - Depression [None]
  - Panic attack [None]
  - Blood bilirubin increased [None]
  - Fatigue [None]
  - Gallbladder disorder [None]
  - Nausea [None]
  - Constipation [None]
  - Blood oestrogen increased [None]

NARRATIVE: CASE EVENT DATE: 20160511
